FAERS Safety Report 22524890 (Version 10)
Quarter: 2024Q3

REPORT INFORMATION
  Report Type: Spontaneous
  Country: CA (occurrence: CA)
  Receive Date: 20230606
  Receipt Date: 20240724
  Transmission Date: 20241016
  Serious: Yes (Hospitalization, Other)
  Sender: CELLTRION
  Company Number: CA-CELLTRION INC.-2022CA005888

PATIENT

DRUGS (7)
  1. INFLECTRA [Suspect]
     Active Substance: INFLIXIMAB-DYYB
     Indication: Crohn^s disease
     Dosage: 1300 MG, EVERY 6 WEEKS
     Route: 042
     Dates: start: 20220509
  2. INFLECTRA [Suspect]
     Active Substance: INFLIXIMAB-DYYB
     Dosage: 1300 MG, EVERY 6 WEEKS
     Route: 042
     Dates: start: 20230417
  3. INFLECTRA [Suspect]
     Active Substance: INFLIXIMAB-DYYB
     Dosage: UNK
     Route: 042
     Dates: start: 20230529
  4. INFLECTRA [Suspect]
     Active Substance: INFLIXIMAB-DYYB
     Dosage: 1400 MG, EVERY 6 WEEKS
     Route: 042
     Dates: start: 20231127
  5. INFLECTRA [Suspect]
     Active Substance: INFLIXIMAB-DYYB
     Dosage: 1400 MG, EVERY 6 WEEKS
     Route: 042
  6. INFLECTRA [Suspect]
     Active Substance: INFLIXIMAB-DYYB
     Dosage: 1400 MG EVERY 6 WEEKS
     Route: 042
     Dates: start: 20240524
  7. INFLECTRA [Suspect]
     Active Substance: INFLIXIMAB-DYYB
     Dosage: 1400 MG EVERY 6 WEEKS
     Route: 042
     Dates: start: 20240705

REACTIONS (10)
  - Strangulated hernia [Not Recovered/Not Resolved]
  - Abdominal hernia [Not Recovered/Not Resolved]
  - Small intestinal obstruction [Recovered/Resolved]
  - Gastrointestinal stoma complication [Recovered/Resolved]
  - Hepatic cirrhosis [Not Recovered/Not Resolved]
  - Cellulitis [Recovering/Resolving]
  - Drug ineffective [Unknown]
  - Cellulitis [Recovered/Resolved]
  - Off label use [Unknown]
  - Off label use [Unknown]

NARRATIVE: CASE EVENT DATE: 20220509
